FAERS Safety Report 20120137 (Version 2)
Quarter: 2022Q1

REPORT INFORMATION
  Report Type: Spontaneous
  Country: CO (occurrence: CO)
  Receive Date: 20211126
  Receipt Date: 20220304
  Transmission Date: 20220424
  Serious: Yes (Other)
  Sender: FDA-Public Use
  Company Number: CO-BRISTOL-MYERS SQUIBB COMPANY-BMS-2021-125011

PATIENT
  Age: 66 Year
  Sex: Female

DRUGS (5)
  1. OPDIVO [Suspect]
     Active Substance: NIVOLUMAB
     Indication: Lung adenocarcinoma stage III
     Dosage: 360 MILLIGRAM, Q3WK
     Route: 042
     Dates: start: 202104
  2. YERVOY [Suspect]
     Active Substance: IPILIMUMAB
     Indication: Lung adenocarcinoma stage III
     Dosage: 66 MILLIGRAM, Q6WK
     Route: 042
     Dates: start: 202104
  3. XANAX [Concomitant]
     Active Substance: ALPRAZOLAM
     Indication: Product used for unknown indication
     Dosage: 1 MILLIGRAM
     Route: 065
  4. SERTRALINE [Concomitant]
     Active Substance: SERTRALINE HYDROCHLORIDE
     Indication: Product used for unknown indication
     Dosage: 25 MILLIGRAM, Q12H
     Route: 065
  5. LEVOTHYROXINE SODIUM [Concomitant]
     Active Substance: LEVOTHYROXINE SODIUM
     Indication: Product used for unknown indication
     Dosage: 150 MICROGRAM
     Route: 065

REACTIONS (4)
  - Autoimmune thyroiditis [Unknown]
  - Malignant neoplasm progression [Unknown]
  - Parathyroid tumour [Unknown]
  - Hyperparathyroidism primary [Unknown]
